FAERS Safety Report 9940378 (Version 2)
Quarter: 2014Q1

REPORT INFORMATION
  Report Type: Spontaneous
  Country: US (occurrence: US)
  Receive Date: 20140303
  Receipt Date: 20140303
  Transmission Date: 20141002
  Serious: Yes (Other)
  Sender: FDA-Public Use
  Company Number: US-ABBVIE-14P-163-1200791-00

PATIENT
  Age: 18 Year
  Sex: Female
  Weight: 308.72 kg

DRUGS (13)
  1. DEPAKOTE [Suspect]
     Indication: CONVULSION
     Dosage: 3 TABS IN AM AND NOC AND 2 TABS IN PM
     Dates: start: 201201
  2. DEPAKOTE [Suspect]
     Indication: BALTIC MYOCLONIC EPILEPSY
  3. DIVALPROEX [Suspect]
     Indication: CONVULSION
     Dates: start: 201001
  4. DIVALPROEX [Suspect]
     Indication: BALTIC MYOCLONIC EPILEPSY
  5. ONFI [Concomitant]
     Indication: PRODUCT USED FOR UNKNOWN INDICATION
     Dates: start: 201307, end: 201307
  6. KLONOPIN [Concomitant]
     Indication: BALTIC MYOCLONIC EPILEPSY
     Dates: end: 201307
  7. KLONOPIN [Concomitant]
     Dates: start: 201307
  8. LEVETIRACETAM [Concomitant]
     Indication: BALTIC MYOCLONIC EPILEPSY
  9. PRIMODONE [Concomitant]
     Indication: BALTIC MYOCLONIC EPILEPSY
  10. CITALOPRAM [Concomitant]
     Indication: DEPRESSION
  11. LEVOTHYROXINE [Concomitant]
     Indication: HYPOTHYROIDISM
  12. LOW-OGESTROL [Concomitant]
     Indication: MENSTRUAL DISORDER
  13. LOW-OGESTROL [Concomitant]
     Indication: OVARIAN CYST

REACTIONS (7)
  - Aura [Unknown]
  - Convulsion [Not Recovered/Not Resolved]
  - Vomiting [Recovered/Resolved]
  - Product solubility abnormal [Unknown]
  - Medication residue present [Recovered/Resolved]
  - Blepharospasm [Not Recovered/Not Resolved]
  - Migraine [Not Recovered/Not Resolved]
